FAERS Safety Report 16155118 (Version 1)
Quarter: 2019Q2

REPORT INFORMATION
  Report Type: Spontaneous
  Country: FR (occurrence: FR)
  Receive Date: 20190403
  Receipt Date: 20190403
  Transmission Date: 20190711
  Serious: Yes (Other)
  Sender: FDA-Public Use
  Company Number: PHHY2019FR076682

PATIENT
  Age: 68 Year
  Sex: Female

DRUGS (1)
  1. TAREG [Suspect]
     Active Substance: VALSARTAN
     Indication: PRODUCT USED FOR UNKNOWN INDICATION
     Dosage: 160 MG, UNK
     Route: 065

REACTIONS (6)
  - Psoriasis [Recovered/Resolved]
  - Pruritus [Unknown]
  - Arthralgia [Unknown]
  - Vasculitis [Unknown]
  - Oedema [Unknown]
  - Leukopenia [Unknown]
